FAERS Safety Report 20685534 (Version 1)
Quarter: 2022Q2

REPORT INFORMATION
  Report Type: Spontaneous
  Country: US (occurrence: US)
  Receive Date: 20220407
  Receipt Date: 20220407
  Transmission Date: 20220720
  Serious: Yes (Other)
  Sender: FDA-Public Use
  Company Number: US-PFIZER INC-2020265467

PATIENT
  Age: 58 Year
  Sex: Male

DRUGS (3)
  1. EUCRISA [Suspect]
     Active Substance: CRISABOROLE
     Indication: Dyshidrotic eczema
     Dosage: APPLY A THIN LAYER TO AFFECTED AREA(S) ON BOTH HANDS TWICE A DAY AS NEEDED
     Route: 061
  2. EUCRISA [Suspect]
     Active Substance: CRISABOROLE
     Dosage: EUCRISA OINTMENT DAILY AS DIRECTED
     Route: 061
  3. EUCRISA [Suspect]
     Active Substance: CRISABOROLE
     Dosage: APPLY TO AFFECTED AREAS ON HANDS TWICE A DAY AS NEEDED
     Route: 061

REACTIONS (3)
  - Basal cell carcinoma [Unknown]
  - Off label use [Unknown]
  - Off label use [Unknown]
